FAERS Safety Report 14833023 (Version 1)
Quarter: 2018Q2

REPORT INFORMATION
  Report Type: Spontaneous
  Country: US (occurrence: US)
  Receive Date: 20180501
  Receipt Date: 20180501
  Transmission Date: 20180711
  Serious: Yes (Hospitalization, Other)
  Sender: FDA-Public Use
  Company Number: US-AMGEN-USASP2018056380

PATIENT
  Age: 55 Year
  Sex: Female

DRUGS (2)
  1. ARANESP [Suspect]
     Active Substance: DARBEPOETIN ALFA
     Dosage: 300 MUG, Q2WK
     Route: 065
  2. ARANESP [Suspect]
     Active Substance: DARBEPOETIN ALFA
     Indication: ANAEMIA
     Dosage: 150 MUG, UNK
     Route: 065
     Dates: start: 20180125

REACTIONS (2)
  - Drug resistance [Unknown]
  - Anti-erythrocyte antibody positive [Not Recovered/Not Resolved]

NARRATIVE: CASE EVENT DATE: 2018
